FAERS Safety Report 10374660 (Version 1)
Quarter: 2014Q1

REPORT INFORMATION
  Report Type: Spontaneous
  Country: US (occurrence: None)
  Receive Date: 20140306
  Receipt Date: 20140306
  Transmission Date: 20141002
  Serious: Yes (Other)
  Sender: FDA-Public Use
  Company Number: 163-21880-13063746

PATIENT
  Age: 64 Year
  Sex: Male
  Weight: 99.79 kg

DRUGS (8)
  1. REVLIMID (LENALIDOMIDE) (15 MILLIGRAM, CAPSULES) [Suspect]
     Indication: PLASMA CELL MYELOMA
     Route: 048
     Dates: start: 20111010
  2. ACCUPRIL (QUINAPRIL HYDROCHLORIDE) (TABLETS) [Concomitant]
  3. DEXAMETHASONE [Concomitant]
  4. NEURONTIN (GABAPENTIN) (TABLETS) [Concomitant]
  5. NEXIUM (ESOMEPRAZOLE) (CAPSULES) [Concomitant]
  6. MULTIVITAMINS [Concomitant]
  7. COLACE (DOCUSATE SODIUM) (CAPSULES) [Concomitant]
  8. VITAMIN A (RETINOL) [Concomitant]

REACTIONS (3)
  - Thrombosis [None]
  - Libido decreased [None]
  - Neuropathy peripheral [None]
